FAERS Safety Report 7202696-8 (Version None)
Quarter: 2010Q4

REPORT INFORMATION
  Report Type: 
  Country: None (occurrence: None)
  Receive Date: 20101220
  Receipt Date: 20101019
  Transmission Date: 20110411
  Serious: Yes (Hospitalization, Other)
  Sender: FDA-Public Use
  Company Number: 017239

PATIENT
  Sex: Female
  Weight: 45.3 kg

DRUGS (12)
  1. CERTOLIZUMAB PEGOL (CERTOLIZUMAB PEGOL) [Suspect]
     Indication: RHEUMATOID ARTHRITIS
     Dosage: 200 MG  1X/2 WEEKS, SUBCUTANEOUS
     Route: 058
     Dates: start: 20100428, end: 20100909
  2. METHOTREXATE [Concomitant]
  3. FOLIC ACID [Concomitant]
  4. DEFLAZACORT [Concomitant]
  5. MELOXICAM [Concomitant]
  6. PIROXICAM [Concomitant]
  7. FERROUS SULFATE [Concomitant]
  8. CAL-D-VITA [Concomitant]
  9. REBAMIPIDE [Concomitant]
  10. METFORMIN HYDROCHLORIDE [Concomitant]
  11. ATORVASTATIN [Concomitant]
  12. ASPIRIN [Concomitant]

REACTIONS (16)
  - ABDOMINAL PAIN [None]
  - BLEPHARITIS [None]
  - BLOOD CREATININE DECREASED [None]
  - BLOOD CREATININE INCREASED [None]
  - BODY TEMPERATURE INCREASED [None]
  - COLITIS ISCHAEMIC [None]
  - DIARRHOEA [None]
  - HAEMOGLOBIN DECREASED [None]
  - MOUTH ULCERATION [None]
  - MUCOSAL INFLAMMATION [None]
  - NAUSEA [None]
  - ORAL CANDIDIASIS [None]
  - OVARIAN ABSCESS [None]
  - PANCYTOPENIA [None]
  - SMALL INTESTINAL OBSTRUCTION [None]
  - VOMITING [None]
